FAERS Safety Report 5447365-X (Version None)
Quarter: 2007Q3

REPORT INFORMATION
  Report Type: 
  Country: None (occurrence: None)
  Receive Date: 20070905
  Receipt Date: 20070905
  Transmission Date: 20080115
  Serious: Yes (Hospitalization)
  Sender: FDA-Public Use
  Company Number: None

PATIENT
  Age: 59 Year
  Sex: Female

DRUGS (7)
  1. CETUXIMAB; (RADIATION 7/9/07-8/3/07 M-F) [Suspect]
     Indication: PANCREATIC CARCINOMA
     Dosage: 400 MG/M2; 250 MG/M2
     Dates: start: 20070709, end: 20070730
  2. CETUXIMAB; (RADIATION 7/9/07-8/3/07 M-F) [Suspect]
     Indication: PANCREATIC CARCINOMA
     Dosage: 400 MG/M2; 250 MG/M2
     Dates: start: 20070702
  3. GEMCITABINE HCL [Suspect]
     Indication: PANCREATIC CARCINOMA
     Dosage: 234 MG IV; 176 MG IV
     Route: 042
     Dates: start: 20070709
  4. GEMCITABINE HCL [Suspect]
     Indication: PANCREATIC CARCINOMA
     Dosage: 234 MG IV; 176 MG IV
     Route: 042
     Dates: start: 20070716
  5. GEMCITABINE HCL [Suspect]
     Indication: PANCREATIC CARCINOMA
     Dosage: 234 MG IV; 176 MG IV
     Route: 042
     Dates: start: 20070723
  6. GEMCITABINE HCL [Suspect]
     Indication: PANCREATIC CARCINOMA
     Dosage: 234 MG IV; 176 MG IV
     Route: 042
     Dates: start: 20070730
  7. RADIATION [Suspect]
     Indication: PANCREATIC CARCINOMA
     Dosage: M-F
     Dates: start: 20070709, end: 20070803

REACTIONS (10)
  - ASCITES [None]
  - BRONCHIAL DISORDER [None]
  - DIARRHOEA [None]
  - DRUG TOXICITY [None]
  - FLUID OVERLOAD [None]
  - HERPES SIMPLEX [None]
  - HYPOXIA [None]
  - INTERSTITIAL LUNG DISEASE [None]
  - PULMONARY TOXICITY [None]
  - RESPIRATORY DISTRESS [None]
